FAERS Safety Report 5451808-5 (Version None)
Quarter: 2007Q3

REPORT INFORMATION
  Report Type: 
  Country: None (occurrence: None)
  Receive Date: 20070912
  Receipt Date: 20070828
  Transmission Date: 20080115
  Serious: Yes (Hospitalization)
  Sender: FDA-Public Use
  Company Number: 02100-JPN-07-0445

PATIENT
  Age: 89 Year
  Sex: Female

DRUGS (9)
  1. CILOSTAZOL [Suspect]
     Indication: TRANSIENT ISCHAEMIC ATTACK
     Dosage: 200 MG ORAL
     Route: 048
     Dates: start: 20070702
  2. TICLOPIDINE HYDROCHLORIDE [Concomitant]
  3. RABEPRAZOLE SODIUM [Concomitant]
  4. AMBROXOL HYDROCHLORIDE [Concomitant]
  5. MAGNESIUM OXIDE [Concomitant]
  6. FLUTICASONE PROPIONATE [Concomitant]
  7. SALMETEROL XINAFOATE [Concomitant]
  8. OZAGREL SODIUM [Concomitant]
  9. CLOPIDOGREL BISULFATE [Concomitant]

REACTIONS (3)
  - BLADDER HYPERTROPHY [None]
  - URINARY BLADDER HAEMORRHAGE [None]
  - URINE OUTPUT DECREASED [None]
